FAERS Safety Report 4277113-0 (Version None)
Quarter: 2004Q1

REPORT INFORMATION
  Report Type: 
  Country: None (occurrence: None)
  Receive Date: 20040120
  Receipt Date: 20040109
  Transmission Date: 20041129
  Serious: Yes (Hospitalization)
  Sender: FDA-Public Use
  Company Number: HQWYE222909JAN04

PATIENT
  Age: 30 Month
  Sex: Female

DRUGS (2)
  1. CHILDREN'S ADVIL [Suspect]
     Indication: PYREXIA
     Dosage: (ALTERNATING WITH EFFERALGAN EVERY 3 HOURS)
     Route: 048
     Dates: start: 20031226
  2. ACETAMINOPHEN [Concomitant]

REACTIONS (8)
  - ANURIA [None]
  - BRONCHITIS [None]
  - CYST [None]
  - INFLUENZA LIKE ILLNESS [None]
  - LUNG DISORDER [None]
  - PLEURAL EFFUSION [None]
  - PYELONEPHRITIS [None]
  - VOMITING [None]
